FAERS Safety Report 14723104 (Version 1)
Quarter: 2018Q2

REPORT INFORMATION
  Report Type: Spontaneous
  Country: US (occurrence: US)
  Receive Date: 20180405
  Receipt Date: 20180405
  Transmission Date: 20180711
  Serious: Yes (Hospitalization, Other)
  Sender: FDA-Public Use
  Company Number: US-ENDO PHARMACEUTICALS INC-201412130

PATIENT
  Age: 55 Year
  Sex: Male

DRUGS (2)
  1. TESTIM [Suspect]
     Active Substance: TESTOSTERONE
     Indication: BLOOD TESTOSTERONE DECREASED
     Dosage: UNK UNKNOWN, UNKNOWN
     Route: 062
     Dates: start: 200910, end: 201212
  2. ANDROGEL [Suspect]
     Active Substance: TESTOSTERONE
     Indication: BLOOD TESTOSTERONE DECREASED
     Dosage: UNK UNKNOWN, UNKNOWN
     Route: 065
     Dates: start: 20080901, end: 200910

REACTIONS (4)
  - Arteriosclerosis coronary artery [Unknown]
  - Cerebrovascular accident [Unknown]
  - Transient ischaemic attack [Unknown]
  - Thrombosis [Unknown]

NARRATIVE: CASE EVENT DATE: 200905
